FAERS Safety Report 24057510 (Version 1)
Quarter: 2024Q3

REPORT INFORMATION
  Report Type: Spontaneous
  Country: GB (occurrence: GB)
  Receive Date: 20240706
  Receipt Date: 20240706
  Transmission Date: 20241016
  Serious: Yes (Other)
  Sender: BAXTER
  Company Number: None

PATIENT
  Age: 39 Year
  Sex: Male

DRUGS (3)
  1. KETOROLAC [Suspect]
     Active Substance: KETOROLAC TROMETHAMINE
     Indication: Headache
     Dosage: (DOSAGE TEXT: 15MG STAT), GIVEN IN ED, DOSAGE FORM: SOLUTION FOR INJECTION
     Route: 065
     Dates: start: 20240624, end: 20240624
  2. AUGMENTIN [Concomitant]
     Active Substance: AMOXICILLIN\CLAVULANATE POTASSIUM
     Indication: Peritonsillar abscess
     Dosage: UNK
     Route: 065
     Dates: start: 20240620, end: 20240626
  3. PREDNISOLONE [Concomitant]
     Active Substance: PREDNISOLONE
     Indication: Peritonsillar abscess
     Dosage: UNK
     Route: 065
     Dates: start: 20240620

REACTIONS (5)
  - Medication error [Unknown]
  - Periorbital swelling [Recovered/Resolved]
  - Skin swelling [Recovered/Resolved]
  - Asthma [Recovered/Resolved]
  - Rash [Recovered/Resolved]

NARRATIVE: CASE EVENT DATE: 20240624
